FAERS Safety Report 6267380-6 (Version None)
Quarter: 2009Q3

REPORT INFORMATION
  Report Type: 
  Country: None (occurrence: None)
  Receive Date: 20090710
  Receipt Date: 20090629
  Transmission Date: 20100115
  Serious: Yes (Hospitalization)
  Sender: FDA-Public Use
  Company Number: 2009AP002610

PATIENT
  Age: 41 Year
  Sex: Female

DRUGS (24)
  1. TIMONIL (CARBAMAZEPINE) [Suspect]
     Dosage: 450 MG;
     Dates: start: 20050101
  2. ZELDOX (ZIPRASIDONE MESILATE) [Suspect]
     Dosage: SEE IMAGE
     Route: 048
     Dates: start: 20090129, end: 20090202
  3. ZELDOX (ZIPRASIDONE MESILATE) [Suspect]
     Dosage: SEE IMAGE
     Route: 048
     Dates: start: 20090207, end: 20090208
  4. ZELDOX (ZIPRASIDONE MESILATE) [Suspect]
     Dosage: SEE IMAGE
     Route: 048
     Dates: start: 20090209, end: 20090219
  5. ZELDOX (ZIPRASIDONE MESILATE) [Suspect]
     Dosage: SEE IMAGE
     Route: 048
     Dates: start: 20090220, end: 20090220
  6. ZELDOX (ZIPRASIDONE MESILATE) [Suspect]
     Dosage: SEE IMAGE
     Route: 048
     Dates: start: 20090128
  7. ZELDOX (ZIPRASIDONE MESILATE) [Suspect]
     Dosage: SEE IMAGE
     Route: 048
     Dates: start: 20090128
  8. ZELDOX (ZIPRASIDONE MESILATE) [Suspect]
     Dosage: SEE IMAGE
     Route: 048
     Dates: start: 20090203
  9. ZELDOX (ZIPRASIDONE MESILATE) [Suspect]
     Dosage: SEE IMAGE
     Route: 048
     Dates: start: 20090204
  10. ZELDOX (ZIPRASIDONE MESILATE) [Suspect]
     Dosage: SEE IMAGE
     Route: 048
     Dates: start: 20090205
  11. ZELDOX (ZIPRASIDONE MESILATE) [Suspect]
     Dosage: SEE IMAGE
     Route: 048
     Dates: start: 20090206
  12. AMITRIPTYLINE HYDROCHLORIDE [Suspect]
     Dosage: SEE IMAGE
     Route: 048
     Dates: start: 20060101, end: 20090106
  13. AMITRIPTYLINE HYDROCHLORIDE [Suspect]
     Dosage: SEE IMAGE
     Route: 048
     Dates: start: 20090108, end: 20090109
  14. AMITRIPTYLINE HYDROCHLORIDE [Suspect]
     Dosage: SEE IMAGE
     Route: 048
     Dates: start: 20090110, end: 20090112
  15. AMITRIPTYLINE HYDROCHLORIDE [Suspect]
     Dosage: SEE IMAGE
     Route: 048
     Dates: start: 20090113, end: 20090121
  16. AMITRIPTYLINE HYDROCHLORIDE [Suspect]
     Dosage: SEE IMAGE
     Route: 048
     Dates: start: 20050101
  17. AMITRIPTYLINE HYDROCHLORIDE [Suspect]
     Dosage: SEE IMAGE
     Route: 048
     Dates: start: 20050101
  18. AMITRIPTYLINE HYDROCHLORIDE [Suspect]
     Dosage: SEE IMAGE
     Route: 048
     Dates: start: 20050428
  19. AMITRIPTYLINE HYDROCHLORIDE [Suspect]
     Dosage: SEE IMAGE
     Route: 048
     Dates: start: 20090107
  20. PANTOPRAZOLE SODIUM [Concomitant]
  21. LEVOTHYROXINE SODIUM [Concomitant]
  22. RISPERIDONE [Concomitant]
  23. OLANZAPINE [Concomitant]
  24. DIAZEPAM [Concomitant]

REACTIONS (3)
  - ELECTROCARDIOGRAM QT PROLONGED [None]
  - MUSCLE FATIGUE [None]
  - PERFORMANCE STATUS DECREASED [None]
